FAERS Safety Report 9334228 (Version 2)
Quarter: 2013Q4

REPORT INFORMATION
  Report Type: Spontaneous
  Country: US (occurrence: US)
  Receive Date: 20130606
  Receipt Date: 20131008
  Transmission Date: 20140711
  Serious: No
  Sender: FDA-Public Use
  Company Number: US-AMGEN-USASP2013037001

PATIENT
  Age: 68 Year
  Sex: Female
  Weight: 88.43 kg

DRUGS (5)
  1. PROLIA [Suspect]
     Indication: OSTEOPOROSIS POSTMENOPAUSAL
     Dosage: 60 MG, Q6MO
     Route: 058
     Dates: start: 20130418
  2. MICARDIS [Concomitant]
     Dosage: 80 MG, UNK
  3. MULTIVITAMIN                       /00097801/ [Concomitant]
     Dosage: UNK UNK, QD
     Route: 048
  4. CALCIUM [Concomitant]
     Dosage: 500 UNK, QD
     Route: 048
  5. VITAMIN D                          /00107901/ [Concomitant]
     Dosage: 500 UNK, QD
     Route: 048

REACTIONS (8)
  - Scratch [Unknown]
  - Skin haemorrhage [Unknown]
  - Contusion [Unknown]
  - Scab [Unknown]
  - Frustration [Unknown]
  - Excoriation [Unknown]
  - Erythema [Unknown]
  - Drug hypersensitivity [Unknown]
